FAERS Safety Report 8158682 (Version 2)
Quarter: 2012Q4

REPORT INFORMATION
  Report Type: 
  Country: US (occurrence: US)
  Receive Date: 20110927
  Receipt Date: 20121203
  Transmission Date: 20130627
  Serious: Yes (Death, Hospitalization)
  Sender: FDA-Public Use
  Company Number: US-GLAXOSMITHKLINE-A0918192A

PATIENT
  Age: 85 Year
  Sex: Female

DRUGS (4)
  1. AVANDIA [Suspect]
     Indication: DIABETES MELLITUS
     Dosage: 4MG Per day
     Route: 048
     Dates: start: 200401
  2. COUMADIN [Concomitant]
  3. LASIX [Concomitant]
  4. VIOXX [Concomitant]

REACTIONS (5)
  - Cardiac failure congestive [Fatal]
  - Multiple fractures [Unknown]
  - Cerebrovascular accident [Unknown]
  - Cardiovascular disorder [Unknown]
  - Fall [Unknown]
